FAERS Safety Report 6978091-3 (Version None)
Quarter: 2010Q3

REPORT INFORMATION
  Report Type: 
  Country: None (occurrence: None)
  Receive Date: 20100913
  Receipt Date: 20100830
  Transmission Date: 20110219
  Serious: Yes (Hospitalization)
  Sender: FDA-Public Use
  Company Number: ES-ELI_LILLY_AND_COMPANY-ES201008008806

PATIENT
  Sex: Female

DRUGS (4)
  1. FORTEO [Suspect]
     Indication: OSTEOPOROSIS
     Dosage: 20 UG, DAILY (1/D)
     Route: 058
     Dates: start: 20090414
  2. INSULIN [Concomitant]
     Indication: DIABETES MELLITUS
     Dosage: UNK, UNKNOWN
     Route: 058
  3. MORPHINE [Concomitant]
     Indication: PAIN
     Dosage: UNK, UNKNOWN
     Route: 062
  4. CORTICOSTEROIDS [Concomitant]
     Indication: MYALGIA
     Dosage: UNK, UNKNOWN
     Route: 048

REACTIONS (1)
  - CYTOMEGALOVIRUS INFECTION [None]
